FAERS Safety Report 17328446 (Version 1)
Quarter: 2020Q1

REPORT INFORMATION
  Report Type: Spontaneous
  Country: FR (occurrence: FR)
  Receive Date: 20200127
  Receipt Date: 20200127
  Transmission Date: 20200409
  Serious: Yes (Death, Other)
  Sender: FDA-Public Use
  Company Number: FR-MYLANLABS-2020M1009137

PATIENT
  Age: 44 Year
  Sex: Female

DRUGS (9)
  1. TAMOXIFEN [Suspect]
     Active Substance: TAMOXIFEN
     Indication: BREAST CANCER FEMALE
     Dosage: UNK
     Route: 065
  2. ARACYTINE [Concomitant]
     Active Substance: CYTARABINE
     Indication: ACUTE MYELOID LEUKAEMIA
     Dosage: UNK UNK, CYCLE, UNK UNK, 1 CYCLICAL (HIGH-DOSE)
     Route: 065
  3. ARACYTINE [Concomitant]
     Active Substance: CYTARABINE
     Dosage: 200 MILLIGRAM/SQ. METER, CYCLE, 200 MG/M2, 1 CYCLICAL, (3+7)
     Route: 065
  4. DOCETAXEL. [Suspect]
     Active Substance: DOCETAXEL
     Indication: BREAST CANCER FEMALE
     Dosage: 75 MILLIGRAM/SQ. METER, CYCLE, 75 MG/M2, 1 CYCLICAL, (6 CYCLES)
     Route: 065
  5. CYCLOPHOSPHAMIDE. [Suspect]
     Active Substance: CYCLOPHOSPHAMIDE
     Indication: BREAST CANCER FEMALE
     Dosage: 500 MG/M2, 1 CYCLICAL, (6 CYCLES)
     Route: 065
  6. TRASTUZUMAB. [Suspect]
     Active Substance: TRASTUZUMAB
     Indication: BREAST CANCER FEMALE
     Dosage: UNK, 1 CYCLICAL (FOR 1 YEAR)
     Route: 065
  7. DOXORUBICIN [Suspect]
     Active Substance: DOXORUBICIN
     Indication: BREAST CANCER FEMALE
     Dosage: 50 MILLIGRAM/SQ. METER, CYCLE, 50 MG/M2, 1 CYCLICAL, (6 CYCLES)
     Route: 065
  8. DAUNORUBICIN [Suspect]
     Active Substance: DAUNORUBICIN
     Indication: ACUTE MYELOID LEUKAEMIA
     Dosage: 60 MILLIGRAM/SQ. METER, CYCLE, 60 MG/M2, 1 CYCLICAL, (3+7)
     Route: 065
  9. LAPATINIB [Suspect]
     Active Substance: LAPATINIB
     Indication: BREAST CANCER FEMALE
     Dosage: UNK UNK, CYCLE, UNK UNK, 1 CYCLICAL (FOR AN YEAR)
     Route: 065

REACTIONS (4)
  - Cardiotoxicity [Fatal]
  - Acute myeloid leukaemia [Fatal]
  - Cardiac arrest [Fatal]
  - Second primary malignancy [Fatal]

NARRATIVE: CASE EVENT DATE: 20090901
